FAERS Safety Report 18860817 (Version 1)
Quarter: 2021Q1

REPORT INFORMATION
  Report Type: Spontaneous
  Country: SE (occurrence: SE)
  Receive Date: 20210208
  Receipt Date: 20210208
  Transmission Date: 20210420
  Serious: Yes (Hospitalization)
  Sender: FDA-Public Use
  Company Number: SE-PFIZER INC-2021097846

PATIENT
  Age: 66 Year
  Sex: Male

DRUGS (11)
  1. STESOLID [Concomitant]
     Active Substance: DIAZEPAM
     Dosage: 1 DF, AS NEEDED
  2. OMEPRAZOL [Concomitant]
     Active Substance: OMEPRAZOLE
     Dosage: 1 DF, AS NEEDED
  3. FINASTERID [Concomitant]
     Active Substance: FINASTERIDE
  4. ALVEDON [Concomitant]
     Active Substance: ACETAMINOPHEN
     Dosage: 1 DF, AS NEEDED
  5. PRO?EPANUTIN [Suspect]
     Active Substance: FOSPHENYTOIN SODIUM
     Dosage: UNK
     Dates: start: 20210105
  6. ZOPIKLON [Concomitant]
     Active Substance: ZOPICLONE
     Dosage: 1 DF, AS NEEDED
  7. LAMOTRIGIN [Concomitant]
     Active Substance: LAMOTRIGINE
  8. ZONEGRAN [Concomitant]
     Active Substance: ZONISAMIDE
  9. SIMVASTATIN. [Concomitant]
     Active Substance: SIMVASTATIN
  10. SERTRALINE [Concomitant]
     Active Substance: SERTRALINE HYDROCHLORIDE
  11. METOPROLOL. [Concomitant]
     Active Substance: METOPROLOL

REACTIONS (3)
  - Nystagmus [Unknown]
  - Balance disorder [Unknown]
  - Ataxia [Unknown]

NARRATIVE: CASE EVENT DATE: 20210105
